FAERS Safety Report 7303721-6 (Version None)
Quarter: 2011Q1

REPORT INFORMATION
  Report Type: 
  Country: None (occurrence: None)
  Receive Date: 20110221
  Receipt Date: 20110210
  Transmission Date: 20110831
  Serious: Yes (Hospitalization, Other)
  Sender: FDA-Public Use
  Company Number: US-ROCHE-735619

PATIENT
  Sex: Female
  Weight: 45.4 kg

DRUGS (2)
  1. ACCUTANE [Suspect]
     Route: 065
     Dates: end: 19920101
  2. ACCUTANE [Suspect]
     Indication: ACNE
     Route: 065
     Dates: start: 19880101

REACTIONS (16)
  - OSTEOARTHRITIS [None]
  - NECK PAIN [None]
  - IRRITABLE BOWEL SYNDROME [None]
  - BACK PAIN [None]
  - DISSOCIATIVE IDENTITY DISORDER [None]
  - HAEMORRHOIDS [None]
  - UPPER GASTROINTESTINAL HAEMORRHAGE [None]
  - DIVERTICULITIS [None]
  - COLONIC POLYP [None]
  - COLITIS ULCERATIVE [None]
  - INFLAMMATORY BOWEL DISEASE [None]
  - SUICIDAL IDEATION [None]
  - DEPRESSION [None]
  - GASTROINTESTINAL INJURY [None]
  - SUICIDE ATTEMPT [None]
  - CROHN'S DISEASE [None]
